FAERS Safety Report 5853257-4 (Version None)
Quarter: 2008Q3

REPORT INFORMATION
  Report Type: 
  Country: None (occurrence: None)
  Receive Date: 20080820
  Receipt Date: 20080806
  Transmission Date: 20090109
  Serious: No
  Sender: FDA-Public Use
  Company Number: US024122

PATIENT
  Age: 51 Year
  Sex: Female
  Weight: 54.4316 kg

DRUGS (4)
  1. PROVIGIL [Suspect]
     Indication: FATIGUE
     Dosage: 200 MG QD ORAL
     Route: 048
     Dates: start: 20080104, end: 20080428
  2. ESKALITH CR [Concomitant]
  3. ATIVAN [Concomitant]
  4. LEXAPRO [Concomitant]

REACTIONS (3)
  - DYSKINESIA [None]
  - RESTLESSNESS [None]
  - THINKING ABNORMAL [None]
